FAERS Safety Report 15927403 (Version 2)
Quarter: 2019Q1

REPORT INFORMATION
  Report Type: Spontaneous
  Country: US (occurrence: US)
  Receive Date: 20190205
  Receipt Date: 20190219
  Transmission Date: 20190417
  Serious: No
  Sender: FDA-Public Use
  Company Number: US-ALLERGAN-1854494US

PATIENT
  Age: 72 Year
  Sex: Female

DRUGS (5)
  1. BOTOX COSMETIC [Suspect]
     Active Substance: ONABOTULINUMTOXINA
     Indication: SKIN WRINKLING
  2. THYROID REPLACEMENT UNSP MEDICATION [Concomitant]
     Indication: THYROID HORMONE REPLACEMENT THERAPY
     Route: 065
  3. BOTOX COSMETIC [Suspect]
     Active Substance: ONABOTULINUMTOXINA
     Indication: SKIN WRINKLING
  4. HORMONE REPLACEMENT MEDICATION [Concomitant]
     Indication: HORMONE REPLACEMENT THERAPY
     Route: 065
  5. BOTOX COSMETIC [Suspect]
     Active Substance: ONABOTULINUMTOXINA
     Indication: SKIN WRINKLING
     Dosage: ACTUAL: GLABELLA 14 UNITS; FOREHEAD 12 UNITS; LATERAL CANTHAL LINES 10 UNITS
     Route: 030
     Dates: start: 20181030, end: 20181030

REACTIONS (1)
  - Therapeutic response decreased [Unknown]

NARRATIVE: CASE EVENT DATE: 20181030
